FAERS Safety Report 7495647-2 (Version None)
Quarter: 2011Q2

REPORT INFORMATION
  Report Type: 
  Country: None (occurrence: None)
  Receive Date: 20110523
  Receipt Date: 20110518
  Transmission Date: 20111010
  Serious: No
  Sender: FDA-Public Use
  Company Number: US-PFIZER INC-2011107358

PATIENT
  Sex: Female
  Weight: 61.22 kg

DRUGS (3)
  1. NEURONTIN [Suspect]
     Indication: SLEEP DISORDER
  2. ESTROSTEP [Concomitant]
     Indication: CONTRACEPTION
     Dosage: DAILY
     Route: 048
     Dates: end: 20100101
  3. NEURONTIN [Suspect]
     Indication: VULVOVAGINAL PAIN
     Dosage: 400 MG, 1X/DAY
     Dates: start: 20000101, end: 20110401

REACTIONS (1)
  - PHOTOSENSITIVITY REACTION [None]
